FAERS Safety Report 7013552-2 (Version None)
Quarter: 2010Q3

REPORT INFORMATION
  Report Type: 
  Country: None (occurrence: None)
  Receive Date: 20100924
  Receipt Date: 20100915
  Transmission Date: 20110219
  Serious: Yes (Other)
  Sender: FDA-Public Use
  Company Number: PHHY2010DE54063

PATIENT
  Sex: Female

DRUGS (4)
  1. GLEEVEC [Suspect]
     Indication: ACUTE LYMPHOCYTIC LEUKAEMIA
     Dosage: 400 MG/DAY
     Route: 048
     Dates: start: 20090901, end: 20100801
  2. METHOTREXATE [Concomitant]
     Dosage: UNK
  3. CYTARABINE [Concomitant]
  4. ASPARAGINASE [Concomitant]

REACTIONS (2)
  - BONE DISORDER [None]
  - POOR PERIPHERAL CIRCULATION [None]
